FAERS Safety Report 5454814-X (Version None)
Quarter: 2007Q3

REPORT INFORMATION
  Report Type: 
  Country: None (occurrence: None)
  Receive Date: 20070917
  Receipt Date: 20070906
  Transmission Date: 20080115
  Serious: No
  Sender: FDA-Public Use
  Company Number: US-BOEHRINGER INGELHEIM PHARMACEUTICALS, INC.-2007-BP-20609BP

PATIENT
  Age: 76 Year
  Sex: Female

DRUGS (2)
  1. MIRAPEX [Suspect]
     Indication: RESTLESS LEGS SYNDROME
     Route: 048
  2. VICODIN ES [Concomitant]
     Indication: RESTLESS LEGS SYNDROME

REACTIONS (5)
  - APTYALISM [None]
  - BURNING SENSATION [None]
  - DENTAL CARIES [None]
  - DRY MOUTH [None]
  - PRURITUS [None]
